FAERS Safety Report 14356022 (Version 1)
Quarter: 2018Q1

REPORT INFORMATION
  Report Type: Spontaneous
  Country: US (occurrence: US)
  Receive Date: 20180104
  Receipt Date: 20180104
  Transmission Date: 20180509
  Serious: No
  Sender: FDA-Public Use
  Company Number: None

PATIENT
  Age: 65 Year
  Sex: Female

DRUGS (8)
  1. IBRANCE [Suspect]
     Active Substance: PALBOCICLIB
     Indication: BREAST CANCER FEMALE
     Dosage: 75MG QD X 21 DAYS PO
     Route: 048
     Dates: start: 20161207
  2. LETROZOLE. [Concomitant]
     Active Substance: LETROZOLE
  3. FLUTICASONE. [Concomitant]
     Active Substance: FLUTICASONE
  4. IBRANCE [Suspect]
     Active Substance: PALBOCICLIB
     Indication: METASTASES TO LUNG
     Dosage: 75MG QD X 21 DAYS PO
     Route: 048
     Dates: start: 20161207
  5. MULTIVITAMIN [Suspect]
     Active Substance: VITAMINS
  6. ADVAIR HFA [Concomitant]
     Active Substance: FLUTICASONE PROPIONATE\SALMETEROL XINAFOATE
  7. HYDROCODONE/ACETAMINOPHEN [Concomitant]
     Active Substance: ACETAMINOPHEN\HYDROCODONE
  8. CALCIUM/VITAMIN D [Concomitant]
     Active Substance: CALCIUM\VITAMIN D

REACTIONS (2)
  - Therapy cessation [None]
  - Dyspepsia [None]

NARRATIVE: CASE EVENT DATE: 20180102
